FAERS Safety Report 7389829-8 (Version None)
Quarter: 2011Q2

REPORT INFORMATION
  Report Type: 
  Country: None (occurrence: None)
  Receive Date: 20110401
  Receipt Date: 20110331
  Transmission Date: 20111010
  Serious: Yes (Other)
  Sender: FDA-Public Use
  Company Number: JP-PFIZER INC-2011072191

PATIENT
  Age: 42 Year
  Sex: Male

DRUGS (1)
  1. GABAPEN [Suspect]
     Indication: PAIN
     Dosage: 600 MG/DAY
     Route: 048
     Dates: start: 20080101

REACTIONS (1)
  - LOSS OF CONSCIOUSNESS [None]
